FAERS Safety Report 19376903 (Version 1)
Quarter: 2021Q2

REPORT INFORMATION
  Report Type: Spontaneous
  Country: AR (occurrence: AR)
  Receive Date: 20210604
  Receipt Date: 20210604
  Transmission Date: 20210717
  Serious: Yes (Hospitalization)
  Sender: FDA-Public Use
  Company Number: NVSC2021AR125267

PATIENT
  Sex: Female

DRUGS (4)
  1. ANAFRANIL [Suspect]
     Active Substance: CLOMIPRAMINE HYDROCHLORIDE
     Indication: FEAR
     Dosage: 25 MG, QD (1 TABLET AT NIGHT)
     Route: 065
     Dates: start: 197510
  2. ANAFRANIL [Suspect]
     Active Substance: CLOMIPRAMINE HYDROCHLORIDE
     Indication: CRYING
     Dosage: 25 MG (STARTED 3 YEARS AGO), QD (1 TABLET AT NIGHT)
     Route: 065
  3. ANAFRANIL [Suspect]
     Active Substance: CLOMIPRAMINE HYDROCHLORIDE
     Indication: AGORAPHOBIA
     Dosage: 25 MG, QD (1 TABLET AT NIGHT)
     Route: 065
  4. ANAFRANIL [Suspect]
     Active Substance: CLOMIPRAMINE HYDROCHLORIDE
     Indication: SOMNOLENCE
     Dosage: 0.5 DF (STARTED 1 YEAR AGO OR A LITTLE MORE), QD (1/2 OF 75 MG DAILY)
     Route: 065

REACTIONS (6)
  - Tremor [Recovering/Resolving]
  - Feeling of despair [Unknown]
  - Feeling abnormal [Recovering/Resolving]
  - Crying [Recovering/Resolving]
  - Product use in unapproved indication [Unknown]
  - Nervousness [Recovering/Resolving]
